FAERS Safety Report 4795874-9 (Version None)
Quarter: 2005Q4

REPORT INFORMATION
  Report Type: 
  Country: None (occurrence: None)
  Receive Date: 20051012
  Receipt Date: 20050927
  Transmission Date: 20060501
  Serious: Yes (Hospitalization)
  Sender: FDA-Public Use
  Company Number: ZAWYE012428SEP05

PATIENT
  Age: 46 Year
  Sex: Female

DRUGS (1)
  1. ENBREL [Suspect]
     Indication: RHEUMATOID ARTHRITIS
     Dosage: 25MG TWICE WEEKLY
     Route: 058

REACTIONS (2)
  - CARDIAC FAILURE CONGESTIVE [None]
  - CARDIOMYOPATHY [None]
